FAERS Safety Report 5924820-7 (Version None)
Quarter: 2008Q4

REPORT INFORMATION
  Report Type: 
  Country: None (occurrence: None)
  Receive Date: 20081017
  Receipt Date: 20081017
  Transmission Date: 20090506
  Serious: Yes (Hospitalization)
  Sender: FDA-Public Use
  Company Number: None

PATIENT
  Age: 74 Year
  Sex: Male
  Weight: 74.3 kg

DRUGS (2)
  1. DOCETAXEL [Suspect]
     Dosage: 75MG/M2
  2. RAD001 [Suspect]
     Indication: NON-SMALL CELL LUNG CANCER
     Dosage: 5 MG
     Dates: start: 20080930

REACTIONS (4)
  - DEHYDRATION [None]
  - DIARRHOEA [None]
  - NEUTROPENIA [None]
  - WHITE BLOOD CELL COUNT DECREASED [None]
